FAERS Safety Report 9170143 (Version 1)
Quarter: 2013Q1

REPORT INFORMATION
  Report Type: Spontaneous
  Country: US (occurrence: None)
  Receive Date: 20130307
  Receipt Date: 20130307
  Transmission Date: 20140127
  Serious: Yes (Other)
  Sender: FDA-Public Use
  Company Number: USA/USA/13/0028334

PATIENT
  Age: 61 Year
  Sex: Female
  Weight: 49.9 kg

DRUGS (1)
  1. LEVOFLOXACIN TABLETS 500 MG (LEVOFLOXACIN) [Suspect]
     Indication: ACINETOBACTER INFECTION
     Route: 048
     Dates: start: 20130207

REACTIONS (10)
  - Ventricular extrasystoles [None]
  - Malaise [None]
  - Fatigue [None]
  - Musculoskeletal pain [None]
  - Arthralgia [None]
  - Chest pain [None]
  - Back pain [None]
  - Pain [None]
  - Nausea [None]
  - Chest discomfort [None]
